FAERS Safety Report 18886799 (Version 2)
Quarter: 2021Q1

REPORT INFORMATION
  Report Type: Spontaneous
  Country: NL (occurrence: NL)
  Receive Date: 20210212
  Receipt Date: 20210302
  Transmission Date: 20210420
  Serious: Yes (Other)
  Sender: FDA-Public Use
  Company Number: NL-TEVA-2021-NL-1878385

PATIENT
  Age: 45 Year
  Sex: Female
  Weight: 76 kg

DRUGS (5)
  1. AZATHIOPRINE TABLET  25MG / BRAND NAME NOT SPECIFIED [Concomitant]
     Dosage: 25 MG , THERAPY START DATE  AND  THERAPY END DATE : ASKED BUT UNKNOWN
  2. ALLOPURINOL TABLET 100MG / BRAND NAME NOT SPECIFIED [Concomitant]
     Active Substance: ALLOPURINOL
     Dosage: 50MG, THERAPY START DATE  AND  THERAPY END DATE : ASKED BUT UNKNOWN
  3. NEBIVOLOL TABLET 5MG / BRAND NAME NOT SPECIFIED [Concomitant]
     Dosage: 5 MG, THERAPY START DATE  AND  THERAPY END DATE : ASKED BUT UNKNOWN
  4. AMLODIPINE TABLET   5MG / BRAND NAME NOT SPECIFIED [Suspect]
     Active Substance: AMLODIPINE BESYLATE
     Indication: HYPERTENSION
     Dosage: 5 MILLIGRAM DAILY; 1X1
     Dates: start: 20201213, end: 20210115
  5. CANDESARTAN TABLET  8MG / BRAND NAME NOT SPECIFIED [Concomitant]
     Dosage: 8 MG, THERAPY START DATE  AND  THERAPY END DATE : ASKED BUT UNKNOWN

REACTIONS (3)
  - Deafness unilateral [Recovered/Resolved]
  - Dizziness [Unknown]
  - Tinnitus [Recovering/Resolving]

NARRATIVE: CASE EVENT DATE: 20201215
